FAERS Safety Report 5383386-3 (Version None)
Quarter: 2007Q3

REPORT INFORMATION
  Report Type: 
  Country: None (occurrence: None)
  Receive Date: 20070710
  Receipt Date: 20070702
  Transmission Date: 20080115
  Serious: Yes (Other)
  Sender: FDA-Public Use
  Company Number: US-ASTRAZENECA-2006UW02714

PATIENT
  Age: 653 Month
  Sex: Male
  Weight: 98.2 kg

DRUGS (10)
  1. SEROQUEL [Suspect]
     Indication: SLEEP DISORDER
     Dosage: 100 TO 400 MG
     Route: 048
     Dates: start: 19990101, end: 20020101
  2. SEROQUEL [Suspect]
     Indication: NERVOUSNESS
     Dosage: 100 TO 400 MG
     Route: 048
     Dates: start: 19990101, end: 20020101
  3. ZYPREXA [Suspect]
     Dates: start: 20020101, end: 20040601
  4. CLOZARIL [Concomitant]
  5. RISPERDAL [Concomitant]
     Dosage: 0.25 TO 1 MG
     Dates: start: 20010503, end: 20010821
  6. THORAZINE [Concomitant]
  7. LEXAPRO [Concomitant]
  8. CLORAZEPAN [Concomitant]
  9. TRAZODONE HCL [Concomitant]
  10. SERTRALINE [Concomitant]

REACTIONS (3)
  - DIABETES MELLITUS [None]
  - DIABETIC NEUROPATHY [None]
  - INJURY [None]
